FAERS Safety Report 17531692 (Version 1)
Quarter: 2020Q1

REPORT INFORMATION
  Report Type: Spontaneous
  Country: US (occurrence: US)
  Receive Date: 20200312
  Receipt Date: 20200312
  Transmission Date: 20200409
  Serious: No
  Sender: FDA-Public Use
  Company Number: NVSC2020US069866

PATIENT
  Sex: Female

DRUGS (1)
  1. PROMACTA [Suspect]
     Active Substance: ELTROMBOPAG OLAMINE
     Indication: IMMUNE THROMBOCYTOPENIC PURPURA
     Dosage: 50 MG, OT (ONCE EVERY 4 DAYS)
     Route: 048

REACTIONS (3)
  - Blood pressure abnormal [Not Recovered/Not Resolved]
  - Stress [Not Recovered/Not Resolved]
  - Asthenia [Not Recovered/Not Resolved]
